FAERS Safety Report 19275561 (Version 2)
Quarter: 2021Q2

REPORT INFORMATION
  Report Type: Spontaneous
  Country: JP (occurrence: JP)
  Receive Date: 20210519
  Receipt Date: 20210528
  Transmission Date: 20210717
  Serious: Yes (Other)
  Sender: FDA-Public Use
  Company Number: JP-PFIZER INC-2021527888

PATIENT
  Age: 5 Decade
  Sex: Male

DRUGS (7)
  1. BIPERIDEN [Suspect]
     Active Substance: BIPERIDEN
     Indication: SCHIZOPHRENIA
     Dosage: 1 MG, DAILY (IN 2 DIVIDED DOSES TAKEN AFTER BREAKFAST AND SUPPER)
  2. LONASEN [Suspect]
     Active Substance: BLONANSERIN
     Indication: SCHIZOPHRENIA
     Dosage: 12 MG, DAILY (4 MG IN THE MORNING AND 8 MG IN THE EVENING)
  3. LAMOTRIGINE. [Concomitant]
     Active Substance: LAMOTRIGINE
     Dosage: 200 MG, DAILY
  4. ARIPIPRAZOLE. [Concomitant]
     Active Substance: ARIPIPRAZOLE
     Dosage: 6 ML, DAILY AS NEEDED WHEN HEARING AUDIO HALLUCINATIONS
  5. TSUMURA YOKUKANSAN EXTRACT GRANULES FOR ETHICAL USE [Concomitant]
     Active Substance: HERBALS
     Dosage: 5 MG, DAILY(IN 2 DIVIDED DOSES BEFORE SUPPER AND BEDTIME)
  6. EFFEXOR [Suspect]
     Active Substance: VENLAFAXINE HYDROCHLORIDE
     Indication: SCHIZOPHRENIA
     Dosage: 75 MG, 1X/DAY AFTER SUPPER
  7. ETHYL LOFLAZEPATE [Concomitant]
     Active Substance: ETHYL LOFLAZEPATE
     Dosage: 2 MG, 1X/DAY BEFORE BEDTIME

REACTIONS (10)
  - Hallucination, auditory [Unknown]
  - Anxiety [Unknown]
  - Mental disorder [Unknown]
  - Irritability [Unknown]
  - Intentional self-injury [Unknown]
  - Depression [Unknown]
  - Suicidal ideation [Unknown]
  - Off label use [Unknown]
  - Hallucination, visual [Unknown]
  - Hypomania [Unknown]
